FAERS Safety Report 10965127 (Version 1)
Quarter: 2015Q1

REPORT INFORMATION
  Report Type: Spontaneous
  Country: TH (occurrence: TH)
  Receive Date: 20150330
  Receipt Date: 20150330
  Transmission Date: 20150721
  Serious: Yes (Hospitalization, Other)
  Sender: FDA-Public Use
  Company Number: TH-009507513-1501THA010740

PATIENT
  Age: 44 Year
  Sex: Female

DRUGS (1)
  1. ETOPLAN [Suspect]
     Active Substance: ETONOGESTREL
     Indication: CONTRACEPTION
     Dosage: UNK
     Dates: start: 20121018

REACTIONS (4)
  - Abortion [Recovered/Resolved]
  - Device difficult to use [Not Recovered/Not Resolved]
  - Unintended pregnancy [Recovered/Resolved]
  - Blood glucose increased [Unknown]

NARRATIVE: CASE EVENT DATE: 20140919
